FAERS Safety Report 21097869 (Version 1)
Quarter: 2022Q3

REPORT INFORMATION
  Report Type: Report from Study
  Country: FR (occurrence: FR)
  Receive Date: 20220719
  Receipt Date: 20220719
  Transmission Date: 20221026
  Serious: Yes (Hospitalization, Other)
  Sender: FDA-Public Use
  Company Number: FR-TAKEDA-2022TUS047603

PATIENT
  Sex: Female

DRUGS (10)
  1. ICATIBANT [Suspect]
     Active Substance: ICATIBANT ACETATE
     Indication: Hereditary angioedema
     Dosage: UNK
     Route: 065
     Dates: start: 20091108
  2. ICATIBANT [Suspect]
     Active Substance: ICATIBANT ACETATE
     Indication: Hereditary angioedema
     Dosage: UNK
     Route: 065
     Dates: start: 20091108
  3. ICATIBANT [Suspect]
     Active Substance: ICATIBANT ACETATE
     Dosage: 30 MILLIGRAM/KILOGRAM, QD
     Route: 050
     Dates: start: 20200128
  4. ICATIBANT [Suspect]
     Active Substance: ICATIBANT ACETATE
     Dosage: 30 MILLIGRAM/KILOGRAM, QD
     Route: 050
     Dates: start: 20200128
  5. ACETAMINOPHEN [Concomitant]
     Active Substance: ACETAMINOPHEN
     Indication: Pyrexia
     Dosage: 1000 MILLIGRAM, QID
     Route: 048
     Dates: start: 20200128, end: 202002
  6. ACETAMINOPHEN [Concomitant]
     Active Substance: ACETAMINOPHEN
     Indication: Pain
  7. Topalgic [Concomitant]
     Indication: Pain
     Dosage: 50 MILLIGRAM, QID
     Route: 048
     Dates: start: 20200128, end: 20200205
  8. LEVOFLOXACIN [Concomitant]
     Active Substance: LEVOFLOXACIN
     Indication: Infection
     Dosage: 500 MILLIGRAM, QD
     Route: 048
     Dates: start: 20200128, end: 20200203
  9. PERFALGAN [Concomitant]
     Active Substance: ACETAMINOPHEN
     Indication: Pain
     Dosage: 1 GRAM
     Route: 042
     Dates: start: 20200129, end: 20200129
  10. NEFOPAM [Concomitant]
     Active Substance: NEFOPAM
     Indication: Pain
     Dosage: 20 MILLIGRAM
     Route: 042
     Dates: start: 20200129, end: 20200129

REACTIONS (1)
  - Pyelonephritis [Recovered/Resolved]

NARRATIVE: CASE EVENT DATE: 20200128
